FAERS Safety Report 16285568 (Version 1)
Quarter: 2019Q2

REPORT INFORMATION
  Report Type: Spontaneous
  Country: US (occurrence: US)
  Receive Date: 20190506
  Receipt Date: 20190506
  Transmission Date: 20190711
  Serious: Yes (Disabling, Other)
  Sender: FDA-Public Use
  Company Number: None

PATIENT
  Age: 52 Year
  Sex: Male
  Weight: 97.2 kg

DRUGS (1)
  1. LIDOCAINE HYDROCHLORIDE AND 5% DEXTROSE INJECTION 250 ML [Suspect]
     Active Substance: DEXTROSE\LIDOCAINE HYDROCHLORIDE
     Indication: PROCEDURAL PAIN
     Dosage: ?          OTHER FREQUENCY:15 ML/HR;?
     Route: 041

REACTIONS (1)
  - Diplopia [None]

NARRATIVE: CASE EVENT DATE: 20181214
